FAERS Safety Report 7109901-7 (Version None)
Quarter: 2010Q4

REPORT INFORMATION
  Report Type: 
  Country: None (occurrence: None)
  Receive Date: 20101116
  Receipt Date: 20101116
  Transmission Date: 20110411
  Serious: Yes (Other)
  Sender: FDA-Public Use
  Company Number: None

PATIENT
  Age: 56 Year
  Sex: Female
  Weight: 56.6996 kg

DRUGS (1)
  1. TRANSDERM SCOP [Suspect]
     Dosage: 1.5MG EVERY 3 DAYS OTHER
     Route: 050
     Dates: start: 20101031, end: 20101107

REACTIONS (10)
  - ABDOMINAL PAIN UPPER [None]
  - ABNORMAL DREAMS [None]
  - CONSTIPATION [None]
  - DECREASED APPETITE [None]
  - DRY MOUTH [None]
  - FEELING ABNORMAL [None]
  - NAUSEA [None]
  - RESTLESSNESS [None]
  - VOMITING [None]
  - WEIGHT DECREASED [None]
